FAERS Safety Report 18814681 (Version 3)
Quarter: 2021Q1

REPORT INFORMATION
  Report Type: Spontaneous
  Country: US (occurrence: US)
  Receive Date: 20210201
  Receipt Date: 20210303
  Transmission Date: 20210419
  Serious: No
  Sender: FDA-Public Use
  Company Number: US-ELI_LILLY_AND_COMPANY-US202101009540

PATIENT
  Sex: Female

DRUGS (2)
  1. BAMLANIVIMAB 700MG [Suspect]
     Active Substance: BAMLANIVIMAB
     Indication: COVID-19
     Dosage: UNK, SINGLE
     Route: 042
     Dates: start: 20210119, end: 20210119
  2. BAMLANIVIMAB 700MG [Suspect]
     Active Substance: BAMLANIVIMAB
     Dosage: 700 MG
     Route: 042
     Dates: start: 20210122, end: 20210122

REACTIONS (3)
  - Incorrect dose administered [Not Recovered/Not Resolved]
  - Infusion site extravasation [Unknown]
  - Extra dose administered [Not Recovered/Not Resolved]
